FAERS Safety Report 6561866-2 (Version None)
Quarter: 2010Q1

REPORT INFORMATION
  Report Type: 
  Country: None (occurrence: None)
  Receive Date: 20100130
  Receipt Date: 20091030
  Transmission Date: 20100710
  Serious: No
  Sender: FDA-Public Use
  Company Number: US-ABBOTT-09P-163-0606043-00

PATIENT
  Sex: Male

DRUGS (2)
  1. HUMIRA [Suspect]
     Indication: COLITIS ULCERATIVE
     Dates: start: 20090227
  2. HUMIRA [Suspect]
     Dates: start: 20090201, end: 20090201

REACTIONS (2)
  - INJECTION SITE SWELLING [None]
  - PAIN IN EXTREMITY [None]
